FAERS Safety Report 20719376 (Version 1)
Quarter: 2022Q2

REPORT INFORMATION
  Report Type: Report from Study
  Country: US (occurrence: US)
  Receive Date: 20220418
  Receipt Date: 20220418
  Transmission Date: 20220721
  Serious: Yes (Hospitalization)
  Sender: FDA-Public Use
  Company Number: US-MYLANLABS-2022M1027074

PATIENT
  Age: 55 Year
  Sex: Female

DRUGS (2)
  1. TEMOZOLOMIDE [Suspect]
     Active Substance: TEMOZOLOMIDE
     Indication: Pineal parenchymal neoplasm malignant
     Dosage: 75 MILLIGRAM/SQ. METER, QD FOR 6 WEEKS
     Route: 048
  2. TEMOZOLOMIDE [Suspect]
     Active Substance: TEMOZOLOMIDE
     Dosage: 200 MILLIGRAM/SQ. METER, QD, ADJUVANT DAILY TEMOZOLOMIDE FOR 5 DAYS IN 28-DAY CYCLES FOR 18 MONTHS
     Route: 048

REACTIONS (2)
  - Drug ineffective [Unknown]
  - Fatigue [Recovered/Resolved]
